FAERS Safety Report 19487290 (Version 5)
Quarter: 2021Q3

REPORT INFORMATION
  Report Type: Report from Study
  Country: AU (occurrence: AU)
  Receive Date: 20210702
  Receipt Date: 20210806
  Transmission Date: 20211014
  Serious: Yes (Hospitalization)
  Sender: FDA-Public Use
  Company Number: NVSC2021AU146940

PATIENT
  Age: 52 Year
  Sex: Male
  Weight: 108 kg

DRUGS (28)
  1. ASPIRIN. [Concomitant]
     Active Substance: ASPIRIN
     Indication: MYOCARDIAL INFARCTION
     Dosage: UNK
     Route: 065
     Dates: start: 20170417
  2. CLOPIDOGREL [Concomitant]
     Active Substance: CLOPIDOGREL BISULFATE
     Indication: MYOCARDIAL INFARCTION
     Dosage: UNK
     Route: 065
     Dates: start: 20210414
  3. LYRICA [Concomitant]
     Active Substance: PREGABALIN
     Indication: MYALGIA
     Dosage: UNK
     Route: 065
     Dates: start: 20210513, end: 20210628
  4. ISOPHANE INSULIN [Concomitant]
     Active Substance: INSULIN NOS
     Indication: TYPE 2 DIABETES MELLITUS
     Dosage: UNK
     Route: 065
     Dates: start: 20200825
  5. BISOPROLOL [Concomitant]
     Active Substance: BISOPROLOL
     Indication: HYPERTENSION
     Dosage: UNK
     Route: 065
     Dates: start: 20170101
  6. NAPORAFENIB. [Suspect]
     Active Substance: NAPORAFENIB
     Dosage: 100 MG, BID
     Route: 048
     Dates: start: 20210714
  7. TAPENTADOL [Concomitant]
     Active Substance: TAPENTADOL
     Indication: MYALGIA
     Dosage: UNK
     Route: 065
     Dates: start: 20210510, end: 20210623
  8. TAPENTADOL [Concomitant]
     Active Substance: TAPENTADOL
     Dosage: UNK
     Route: 065
     Dates: start: 20210630, end: 20210701
  9. MS CONTIN [Concomitant]
     Active Substance: MORPHINE SULFATE
     Indication: ARTHRALGIA
     Dosage: UNK
     Route: 065
     Dates: start: 20210629, end: 20210705
  10. ROSUVASTATIN. [Concomitant]
     Active Substance: ROSUVASTATIN
     Indication: PROPHYLAXIS
     Dosage: UNK
     Route: 065
     Dates: start: 20200825
  11. LIDOCAINE. [Concomitant]
     Active Substance: LIDOCAINE
     Indication: NAIL AVULSION
     Dosage: UNK
     Route: 065
     Dates: start: 20210630, end: 20210630
  12. VITAMIN C [Concomitant]
     Active Substance: ASCORBIC ACID
     Indication: GENERAL PHYSICAL CONDITION
     Dosage: UNK
     Route: 065
     Dates: start: 20200101
  13. METFORMIN [Concomitant]
     Active Substance: METFORMIN HYDROCHLORIDE
     Indication: TYPE 2 DIABETES MELLITUS
     Dosage: UNK
     Route: 065
     Dates: start: 20210116
  14. TRAMETINIB [Suspect]
     Active Substance: TRAMETINIB
     Indication: MALIGNANT MELANOMA
     Dosage: 0.5 MG, BID
     Route: 048
     Dates: start: 20210421, end: 20210628
  15. TRAMETINIB [Suspect]
     Active Substance: TRAMETINIB
     Dosage: 100 MG, BID
     Route: 048
     Dates: start: 20210714
  16. NAPORAFENIB. [Suspect]
     Active Substance: NAPORAFENIB
     Indication: MALIGNANT MELANOMA
     Dosage: 200 MG, BID
     Route: 048
     Dates: start: 20210421, end: 20210628
  17. CLINDATECH [Concomitant]
     Indication: PARONYCHIA
     Dosage: UNK
     Route: 065
     Dates: start: 20210602, end: 20210618
  18. INSULIN ASPART [Concomitant]
     Active Substance: INSULIN ASPART
     Indication: TYPE 2 DIABETES MELLITUS
     Dosage: UNK
     Route: 065
     Dates: start: 20200825
  19. LYRICA [Concomitant]
     Active Substance: PREGABALIN
     Indication: ARTHRALGIA
     Dosage: UNK
     Route: 065
     Dates: start: 20210629
  20. DOXYCYCLINE. [Concomitant]
     Active Substance: DOXYCYCLINE
     Indication: DERMATITIS ACNEIFORM
     Dosage: UNK
     Route: 065
     Dates: start: 20210616
  21. DOXYCYCLINE. [Concomitant]
     Active Substance: DOXYCYCLINE
     Indication: PROPHYLAXIS
  22. LOPERAMIDE [Concomitant]
     Active Substance: LOPERAMIDE
     Indication: DIARRHOEA
     Dosage: UNK
     Route: 065
     Dates: start: 20200101
  23. TAPENTADOL [Concomitant]
     Active Substance: TAPENTADOL
     Indication: ARTHRALGIA
     Dosage: UNK
     Route: 065
     Dates: start: 20210624, end: 20210630
  24. VENTOLIN [Concomitant]
     Active Substance: ALBUTEROL SULFATE
     Indication: ASTHMA
     Dosage: UNK
     Route: 065
     Dates: start: 19750101
  25. TAPENTADOL [Concomitant]
     Active Substance: TAPENTADOL
     Dosage: UNK
     Route: 065
     Dates: start: 20210701
  26. MS CONTIN [Concomitant]
     Active Substance: MORPHINE SULFATE
     Indication: MYALGIA
     Dosage: UNK
     Route: 065
     Dates: start: 20210519, end: 20210628
  27. IRBESARTAN. [Concomitant]
     Active Substance: IRBESARTAN
     Indication: MYOCARDIAL INFARCTION
     Dosage: UNK
     Route: 065
     Dates: start: 20210417
  28. ENOXAPARIN [Concomitant]
     Active Substance: ENOXAPARIN
     Indication: PROPHYLAXIS
     Dosage: UNK
     Route: 065
     Dates: start: 20210629, end: 20210701

REACTIONS (4)
  - Arthralgia [Recovered/Resolved]
  - Myalgia [Recovering/Resolving]
  - Paronychia [Recovered/Resolved]
  - Headache [Recovered/Resolved]

NARRATIVE: CASE EVENT DATE: 20210628
